FAERS Safety Report 5776647-7 (Version None)
Quarter: 2008Q2

REPORT INFORMATION
  Report Type: 
  Country: None (occurrence: None)
  Receive Date: 20080618
  Receipt Date: 20080609
  Transmission Date: 20081010
  Serious: Yes (Hospitalization, Other)
  Sender: FDA-Public Use
  Company Number: US-BAYER-200825193NA

PATIENT
  Age: 47 Year
  Sex: Female
  Weight: 74 kg

DRUGS (6)
  1. CIPRO [Suspect]
     Indication: TOOTH INFECTION
     Dosage: TOTAL DAILY DOSE: 1500 MG  UNIT DOSE: 500 MG
     Route: 048
  2. LEVAQUIN [Suspect]
     Indication: TOOTH INFECTION
     Dosage: TOTAL DAILY DOSE: 500 MG  UNIT DOSE: 500 MG
     Route: 048
  3. SERTRALINE [Suspect]
     Indication: DEPRESSION
     Dosage: TOTAL DAILY DOSE: 300 MG  UNIT DOSE: 300 MG
     Route: 048
  4. RISPERDAL [Concomitant]
     Indication: SCHIZOAFFECTIVE DISORDER
     Dosage: TOTAL DAILY DOSE: 6 MG  UNIT DOSE: 1 MG
     Route: 048
     Dates: start: 20030101
  5. CLONOPIN [Concomitant]
     Dates: start: 20050101
  6. TEMAZEPAM [Concomitant]

REACTIONS (2)
  - BLOOD SODIUM DECREASED [None]
  - POLYDIPSIA [None]
